FAERS Safety Report 18473559 (Version 2)
Quarter: 2020Q4

REPORT INFORMATION
  Report Type: Spontaneous
  Country: CN (occurrence: CN)
  Receive Date: 20201106
  Receipt Date: 20201118
  Transmission Date: 20210114
  Serious: Yes (Other)
  Sender: FDA-Public Use
  Company Number: CN-NOVOPROD-764994

PATIENT
  Age: 74 Year
  Sex: Male
  Weight: 62.5 kg

DRUGS (2)
  1. LEVEMIR [Suspect]
     Active Substance: INSULIN DETEMIR
     Indication: TYPE 1 DIABETES MELLITUS
     Dosage: 18 IU, QD (BEFORE GOING TO BED)
     Route: 065
  2. NOVORAPID [Suspect]
     Active Substance: INSULIN ASPART
     Indication: TYPE 1 DIABETES MELLITUS
     Dosage: 18 IU, TID (18, 18, 18 U IN THE MORNING, AT NOON AND IN THE EVENING)
     Route: 065
     Dates: start: 20201017

REACTIONS (4)
  - Product leakage [Unknown]
  - Incorrect dose administered [Unknown]
  - Product physical issue [Unknown]
  - Diabetic ketoacidosis [Recovered/Resolved]

NARRATIVE: CASE EVENT DATE: 20201017
